FAERS Safety Report 6356028-8 (Version None)
Quarter: 2009Q3

REPORT INFORMATION
  Report Type: 
  Country: None (occurrence: None)
  Receive Date: 20090915
  Receipt Date: 20090904
  Transmission Date: 20100115
  Serious: No
  Sender: FDA-Public Use
  Company Number: JP-AMGEN-US345127

PATIENT
  Sex: Male
  Weight: 53 kg

DRUGS (13)
  1. ENBREL [Suspect]
     Indication: RHEUMATOID ARTHRITIS
     Route: 058
     Dates: start: 20080613, end: 20081028
  2. FOLIAMIN [Concomitant]
     Indication: RHEUMATOID ARTHRITIS
     Route: 048
     Dates: start: 20080108
  3. SALAZOSULFAPYRIDINE [Concomitant]
     Indication: RHEUMATOID ARTHRITIS
     Route: 048
  4. ZANTAC [Concomitant]
     Indication: GASTRITIS PROPHYLAXIS
     Route: 045
  5. CLARITHROMYCIN [Concomitant]
     Indication: BRONCHIECTASIS
     Route: 048
  6. MUCOSTA [Concomitant]
     Indication: GASTRITIS PROPHYLAXIS
     Route: 048
  7. PREDNISOLONE [Concomitant]
     Indication: RHEUMATOID ARTHRITIS
     Route: 048
  8. PECTITE [Concomitant]
     Indication: BRONCHIECTASIS
     Route: 048
  9. MUCODYNE [Concomitant]
     Indication: BRONCHIECTASIS
     Route: 048
  10. METOLATE [Concomitant]
     Indication: RHEUMATOID ARTHRITIS
     Route: 048
     Dates: start: 20080108
  11. METOLATE [Concomitant]
     Route: 048
     Dates: start: 20080130
  12. METOLATE [Concomitant]
     Route: 048
     Dates: start: 20080207, end: 20081028
  13. CLINORIL [Concomitant]
     Indication: RHEUMATOID ARTHRITIS
     Route: 048

REACTIONS (1)
  - PNEUMONIA BACTERIAL [None]
